FAERS Safety Report 5902682-1 (Version None)
Quarter: 2008Q3

REPORT INFORMATION
  Report Type: 
  Country: None (occurrence: None)
  Receive Date: 20080929
  Receipt Date: 20080929
  Transmission Date: 20090109
  Serious: Yes (Death)
  Sender: FDA-Public Use
  Company Number: None

PATIENT
  Age: 82 Year
  Sex: Male

DRUGS (2)
  1. NITROFURANTOIN [Suspect]
     Dosage: 100MG BID
  2. HYDROCODONE/APAP [Suspect]
     Dosage: 10/500MG

REACTIONS (5)
  - CATHETER RELATED COMPLICATION [None]
  - HAEMORRHAGE [None]
  - HELMINTHIC INFECTION [None]
  - NEOPLASM MALIGNANT [None]
  - THROMBOSIS [None]
